FAERS Safety Report 4416637-X (Version None)
Quarter: 2004Q2

REPORT INFORMATION
  Report Type: 
  Country: None (occurrence: None)
  Receive Date: 20040630
  Receipt Date: 20040427
  Transmission Date: 20050107
  Serious: Yes (Hospitalization)
  Sender: FDA-Public Use
  Company Number: 04P-163-0258899-00

PATIENT
  Age: 58 Year
  Sex: Male
  Weight: 73.9363 kg

DRUGS (6)
  1. HUMIRA [Suspect]
     Indication: POLYARTHRITIS
     Dosage: 40 MG, 1 IN 2 WK, SUBCUTANEOUS
     Route: 058
     Dates: start: 20030528, end: 20040119
  2. PREDNISONE [Concomitant]
  3. NOVALOG INSULIN [Concomitant]
  4. METHOTREXATE [Concomitant]
  5. RISEDRONATE SODIUM [Concomitant]
  6. OXYCOCET [Concomitant]

REACTIONS (2)
  - ADVERSE EVENT [None]
  - DRUG INEFFECTIVE [None]
